FAERS Safety Report 16190689 (Version 2)
Quarter: 2019Q2

REPORT INFORMATION
  Report Type: Spontaneous
  Country: GB (occurrence: GB)
  Receive Date: 20190412
  Receipt Date: 20190604
  Transmission Date: 20190711
  Serious: Yes (Death, Other)
  Sender: FDA-Public Use
  Company Number: GB-MYLANLABS-2019M1034968

PATIENT
  Age: 76 Year
  Sex: Male
  Weight: 69 kg

DRUGS (4)
  1. CLARITHROMYCIN. [Suspect]
     Active Substance: CLARITHROMYCIN
     Indication: PNEUMONIA
     Dosage: 500 MILLIGRAM, BID,(1000 MILLIGRAM, QD
     Route: 042
     Dates: start: 20180127, end: 20180131
  2. TACROLIMUS. [Interacting]
     Active Substance: TACROLIMUS
     Indication: PRODUCT USED FOR UNKNOWN INDICATION
     Dosage: 3 MILLIGRAM, QD (1.5 MG, BID)
     Route: 065
  3. TACROLIMUS. [Interacting]
     Active Substance: TACROLIMUS
     Indication: RENAL TRANSPLANT
     Dosage: 15 MILLIGRAM, BID,30 MILLIGRAM, QD
     Route: 048
  4. PREDNISOLONE. [Concomitant]
     Active Substance: PREDNISOLONE
     Indication: PRODUCT USED FOR UNKNOWN INDICATION
     Dosage: UNK
     Route: 065

REACTIONS (6)
  - Labelled drug-drug interaction medication error [Unknown]
  - Acute kidney injury [Fatal]
  - Oesophageal carcinoma [Fatal]
  - Drug level increased [Fatal]
  - Oesophageal perforation [Unknown]
  - Sepsis [Unknown]

NARRATIVE: CASE EVENT DATE: 20180127
